FAERS Safety Report 23124561 (Version 20)
Quarter: 2024Q4

REPORT INFORMATION
  Report Type: Spontaneous
  Country: US (occurrence: US)
  Receive Date: 20231030
  Receipt Date: 20241018
  Transmission Date: 20250115
  Serious: Yes (Life-Threatening, Hospitalization, Other)
  Sender: PFIZER
  Company Number: US-PFIZER INC-202300337611

PATIENT
  Age: 68 Year
  Sex: Male

DRUGS (4)
  1. BUPIVACAINE HYDROCHLORIDE [Suspect]
     Active Substance: BUPIVACAINE HYDROCHLORIDE
     Indication: Induction of anaesthesia
     Dosage: 30 ML
  2. EPINEPHRINE [Suspect]
     Active Substance: EPINEPHRINE
     Dosage: 1:200,000
  3. EXPAREL [Suspect]
     Active Substance: BUPIVACAINE
     Indication: Transversus abdominis plane block
     Dosage: 20 ML
  4. EXPAREL [Suspect]
     Active Substance: BUPIVACAINE
     Dosage: 266 MG/KG

REACTIONS (4)
  - Local anaesthetic systemic toxicity [Recovering/Resolving]
  - Ventricular tachycardia [Recovering/Resolving]
  - Ventricular fibrillation [Recovering/Resolving]
  - Pulseless electrical activity [Recovering/Resolving]
